FAERS Safety Report 14944990 (Version 1)
Quarter: 2018Q2

REPORT INFORMATION
  Report Type: Spontaneous
  Country: FR (occurrence: FR)
  Receive Date: 20180529
  Receipt Date: 20180529
  Transmission Date: 20180711
  Serious: Yes (Hospitalization)
  Sender: FDA-Public Use
  Company Number: FR-TEVA-2018-FR-897097

PATIENT
  Age: 81 Year
  Sex: Male
  Weight: 76 kg

DRUGS (13)
  1. IMODIUM [Concomitant]
     Active Substance: LOPERAMIDE HYDROCHLORIDE
     Dosage: 2 DOSAGE FORMS DAILY;
     Route: 048
     Dates: start: 20171115
  2. APROVEL [Concomitant]
     Active Substance: IRBESARTAN
     Route: 048
  3. PREDNISONE. [Concomitant]
     Active Substance: PREDNISONE
     Dosage: 10 MILLIGRAM DAILY;
     Route: 048
  4. SMECTA [Concomitant]
     Active Substance: MONTMORILLONITE
     Route: 048
  5. OMIX LP 0,4 MG, MICROGRANULES ? LIB?RATION PROLONG?E EN G?LULE [Concomitant]
     Route: 048
  6. CALCIUM VITAMINE D3 GNR [Concomitant]
     Route: 048
  7. XARELTO [Concomitant]
     Active Substance: RIVAROXABAN
     Dosage: 15 MILLIGRAM DAILY;
     Route: 048
  8. CREON [Suspect]
     Active Substance: PANCRELIPASE AMYLASE\PANCRELIPASE LIPASE\PANCRELIPASE PROTEASE
     Dosage: 75000 IU (INTERNATIONAL UNIT) DAILY;
     Route: 048
     Dates: start: 20171201, end: 20171218
  9. PANTOPRAZOLE [Suspect]
     Active Substance: PANTOPRAZOLE
     Route: 048
     Dates: start: 20171202, end: 20171228
  10. TRIMEBUTINE [Concomitant]
     Active Substance: TRIMEBUTINE
     Dosage: 300 MILLIGRAM DAILY;
     Route: 048
     Dates: start: 20171023
  11. SPASFON (PHLOROGLUCINOL, TRIMETHYLPHLOROGLUCINOL) [Concomitant]
     Active Substance: PHLOROGLUCINOL\1,3,5-TRIMETHOXYBENZENE
     Dosage: 240 MILLIGRAM DAILY;
     Route: 048
  12. SOTALOL (CHLORHYDRATE DE) [Concomitant]
     Active Substance: SOTALOL
     Dosage: 160 MILLIGRAM DAILY;
     Route: 048
  13. UVEDOSE [Concomitant]
     Active Substance: CHOLECALCIFEROL
     Route: 048

REACTIONS (1)
  - Toxic skin eruption [Recovered/Resolved]

NARRATIVE: CASE EVENT DATE: 20171215
